FAERS Safety Report 10764815 (Version 1)
Quarter: 2015Q1

REPORT INFORMATION
  Report Type: Spontaneous
  Country: US (occurrence: None)
  Receive Date: 20150204
  Receipt Date: 20150204
  Transmission Date: 20150721
  Serious: Yes (Other)
  Sender: FDA-Public Use
  Company Number: None

PATIENT
  Sex: Male

DRUGS (1)
  1. VIAGRA [Suspect]
     Active Substance: SILDENAFIL CITRATE
     Indication: ERECTILE DYSFUNCTION
     Dosage: SILDENAFIL (VIAGRA) 50 MG, 1 TABLET ONCE DAILY, ORAL
     Route: 048
     Dates: start: 20131028

REACTIONS (1)
  - Drug effect decreased [None]
